FAERS Safety Report 23698287 (Version 1)
Quarter: 2024Q2

REPORT INFORMATION
  Report Type: Spontaneous
  Country: US (occurrence: US)
  Receive Date: 20240402
  Receipt Date: 20240402
  Transmission Date: 20240716
  Serious: No
  Sender: FDA-Public Use
  Company Number: US-ABBVIE-5700531

PATIENT
  Sex: Female

DRUGS (3)
  1. ACTONEL [Suspect]
     Active Substance: RISEDRONATE SODIUM
     Indication: Bone disorder
     Dosage: FORM STRENGTH- RISEDRONATE SODIUM 5MG TAB
     Route: 048
  2. ACTONEL [Suspect]
     Active Substance: RISEDRONATE SODIUM
     Indication: Bone disorder
     Dosage: FORM STRENGTH- RISEDRONATE SODIUM 5MG TAB
     Route: 048
  3. ACTONEL [Suspect]
     Active Substance: RISEDRONATE SODIUM
     Indication: Bone disorder
     Dosage: FORM STRENGTH- RISEDRONATE SODIUM 5MG TAB
     Route: 048

REACTIONS (3)
  - Gastrointestinal disorder [Unknown]
  - Dysphagia [Unknown]
  - Feeding disorder [Unknown]
